FAERS Safety Report 7767975-4 (Version None)
Quarter: 2011Q3

REPORT INFORMATION
  Report Type: 
  Country: None (occurrence: None)
  Receive Date: 20110922
  Receipt Date: 20100803
  Transmission Date: 20111222
  Serious: Yes (Other)
  Sender: FDA-Public Use
  Company Number: US-ASTRAZENECA-2007UW25282

PATIENT
  Age: 20018 Day
  Sex: Female
  Weight: 75.7 kg

DRUGS (15)
  1. SEROQUEL [Suspect]
     Route: 048
     Dates: start: 20030410, end: 20060301
  2. SEREVENT [Concomitant]
     Dosage: 21MCG/AC
     Dates: start: 19990306
  3. PAXIL [Concomitant]
     Dates: start: 20001121
  4. FLOVENT [Concomitant]
     Dosage: 110MCG/A - 220 MCG/A
     Dates: start: 20020308
  5. SEROQUEL [Suspect]
     Route: 048
     Dates: start: 20030410, end: 20060301
  6. TRAZODONE HYDROCHLORIDE [Concomitant]
     Dates: start: 19990306
  7. PROZAC [Concomitant]
     Indication: ANXIETY
     Dosage: 20MG-40MG
     Dates: start: 19990306
  8. SEROQUEL [Suspect]
     Indication: POST-TRAUMATIC STRESS DISORDER
     Dosage: 25MG - 100MG
     Route: 048
     Dates: start: 20030316, end: 20060323
  9. SEROQUEL [Suspect]
     Indication: INSOMNIA
     Dosage: 25MG - 100MG
     Route: 048
     Dates: start: 20030316, end: 20060323
  10. PRILOSEC [Concomitant]
     Dates: start: 19990306
  11. SEROQUEL [Suspect]
     Indication: DEPRESSION
     Dosage: 25MG - 100MG
     Route: 048
     Dates: start: 20030316, end: 20060323
  12. ALLEGRA [Concomitant]
     Dates: start: 20010522
  13. TAMOXIFEN CITRATE [Concomitant]
     Dates: start: 20041112, end: 20070711
  14. SEROQUEL [Suspect]
     Route: 048
     Dates: start: 20030410, end: 20060301
  15. KLONOPIN [Concomitant]
     Dates: start: 19990306

REACTIONS (26)
  - TYPE 2 DIABETES MELLITUS [None]
  - ARTHRALGIA [None]
  - NEPHROLITHIASIS [None]
  - PAIN [None]
  - DYSARTHRIA [None]
  - BREAST CANCER [None]
  - URINARY TRACT INFECTION [None]
  - RENAL PAIN [None]
  - ARTHRITIS [None]
  - MUSCULOSKELETAL PAIN [None]
  - HYPERCHOLESTEROLAEMIA [None]
  - DYSPNOEA [None]
  - INFLUENZA [None]
  - HAEMORRHOIDS [None]
  - HAEMORRHAGE [None]
  - BACK PAIN [None]
  - BREAST MASS [None]
  - GASTROINTESTINAL DISORDER [None]
  - HAEMATURIA [None]
  - EAR DISORDER [None]
  - RENAL CYST [None]
  - RECTAL HAEMORRHAGE [None]
  - BLOOD CHOLESTEROL INCREASED [None]
  - HYPERLIPIDAEMIA [None]
  - DIARRHOEA [None]
  - GASTROOESOPHAGEAL REFLUX DISEASE [None]
